FAERS Safety Report 7354705-3 (Version None)
Quarter: 2011Q1

REPORT INFORMATION
  Report Type: 
  Country: None (occurrence: None)
  Receive Date: 20110316
  Receipt Date: 20110304
  Transmission Date: 20110831
  Serious: Yes (Other)
  Sender: FDA-Public Use
  Company Number: AU-TYCO HEALTHCARE/MALLINCKRODT-T201100581

PATIENT
  Sex: Female

DRUGS (1)
  1. EXALGO [Suspect]
     Dosage: UNK

REACTIONS (2)
  - ASTHMA [None]
  - DRUG PRESCRIBING ERROR [None]
